FAERS Safety Report 9641470 (Version 1)
Quarter: 2013Q4

REPORT INFORMATION
  Report Type: Spontaneous
  Country: US (occurrence: None)
  Receive Date: 20131022
  Receipt Date: 20131022
  Transmission Date: 20140711
  Serious: No
  Sender: FDA-Public Use
  Company Number: None

PATIENT
  Sex: 0

DRUGS (2)
  1. ADVANCED EXTRA STRENGTH ASPIRIN [Suspect]
     Indication: HEADACHE
     Dates: start: 201305, end: 201307
  2. ADVANCED EXTRA STRENGTH ASPIRIN [Suspect]
     Indication: ARTHRALGIA
     Dates: start: 201305, end: 201307

REACTIONS (3)
  - Dysgeusia [None]
  - Product odour abnormal [None]
  - Product physical issue [None]
